FAERS Safety Report 7792956-4 (Version None)
Quarter: 2011Q4

REPORT INFORMATION
  Report Type: 
  Country: None (occurrence: None)
  Receive Date: 20111003
  Receipt Date: 20110926
  Transmission Date: 20120403
  Serious: Yes (Hospitalization)
  Sender: FDA-Public Use
  Company Number: PHHY2010DE36949

PATIENT
  Sex: Female

DRUGS (6)
  1. ZOMETA [Suspect]
     Dosage: 4 MG, EVERY 6 MONTH
     Route: 042
     Dates: start: 20100501
  2. SYMBICORT [Concomitant]
     Dates: start: 20000101
  3. AREDIA [Suspect]
     Dosage: 90 MG, EVERY FOUR WEEKS
     Route: 042
     Dates: start: 20001001, end: 20020101
  4. ZOMETA [Suspect]
     Indication: METASTASES TO BONE
     Dosage: 4 MG, EVERY 4 WEEKS
     Route: 042
     Dates: start: 20020201, end: 20100501
  5. FASLODEX [Concomitant]
     Indication: BREAST CANCER METASTATIC
     Route: 030
     Dates: start: 20070101
  6. NASONEX [Concomitant]
     Dates: start: 20000101

REACTIONS (4)
  - ANKLE FRACTURE [None]
  - BONE DENSITY INCREASED [None]
  - MULTIPLE FRACTURES [None]
  - PATELLA FRACTURE [None]
